FAERS Safety Report 18549866 (Version 1)
Quarter: 2020Q4

REPORT INFORMATION
  Report Type: Report from Study
  Country: JP (occurrence: JP)
  Receive Date: 20201126
  Receipt Date: 20201126
  Transmission Date: 20210114
  Serious: Yes (Other)
  Sender: FDA-Public Use
  Company Number: JP-TAKEDA-2020TUS013886

PATIENT
  Age: 59 Year
  Sex: Male
  Weight: 56.5 kg

DRUGS (68)
  1. DARATUMUMAB [Suspect]
     Active Substance: DARATUMUMAB
     Dosage: 16 MILLIGRAM/KILOGRAM, QD
     Route: 041
     Dates: start: 20180319, end: 20180319
  2. DARATUMUMAB [Suspect]
     Active Substance: DARATUMUMAB
     Dosage: 16 MILLIGRAM/KILOGRAM, QD
     Route: 041
     Dates: start: 20180522, end: 20180522
  3. DARATUMUMAB [Suspect]
     Active Substance: DARATUMUMAB
     Dosage: 16 MILLIGRAM/KILOGRAM, QD
     Route: 041
     Dates: start: 20181225, end: 20181225
  4. DEXAMETHASONE. [Suspect]
     Active Substance: DEXAMETHASONE
     Indication: PLASMA CELL MYELOMA
     Dosage: 40 MILLIGRAM, QD
     Route: 065
     Dates: start: 20180305, end: 20180305
  5. DEXAMETHASONE. [Suspect]
     Active Substance: DEXAMETHASONE
     Dosage: 20 MILLIGRAM, QD
     Route: 065
     Dates: start: 20180605, end: 20180605
  6. DEXAMETHASONE. [Suspect]
     Active Substance: DEXAMETHASONE
     Dosage: 10 MILLIGRAM, QD
     Route: 065
     Dates: start: 20180925, end: 20180925
  7. QUETIAPINE. [Concomitant]
     Active Substance: QUETIAPINE
     Indication: SUBSTANCE-INDUCED PSYCHOTIC DISORDER
     Dosage: 25 MILLIGRAM, QD
     Route: 048
     Dates: start: 20180521
  8. BORTEZOMIB. [Suspect]
     Active Substance: BORTEZOMIB
     Dosage: 1.3 MILLIGRAM/SQ. METER, QD
     Route: 065
     Dates: start: 20180327, end: 20180327
  9. DARATUMUMAB [Suspect]
     Active Substance: DARATUMUMAB
     Dosage: 16 MILLIGRAM/KILOGRAM, QD
     Route: 041
     Dates: start: 20180828, end: 20180828
  10. DEXAMETHASONE. [Suspect]
     Active Substance: DEXAMETHASONE
     Dosage: 20 MILLIGRAM, QD
     Route: 065
     Dates: start: 20180319, end: 20180319
  11. DEXAMETHASONE. [Suspect]
     Active Substance: DEXAMETHASONE
     Dosage: 10 MILLIGRAM, QD
     Route: 065
     Dates: start: 20180703, end: 20180703
  12. DEXAMETHASONE. [Suspect]
     Active Substance: DEXAMETHASONE
     Dosage: 10 MILLIGRAM, QD
     Route: 065
     Dates: start: 20180731, end: 20180731
  13. DEXAMETHASONE. [Suspect]
     Active Substance: DEXAMETHASONE
     Dosage: 10 MILLIGRAM, QD
     Route: 065
     Dates: start: 20180828, end: 20180828
  14. DEXAMETHASONE. [Suspect]
     Active Substance: DEXAMETHASONE
     Dosage: 10 MILLIGRAM, QD
     Route: 065
     Dates: start: 20181127, end: 20181127
  15. LENALIDOMIDE [Concomitant]
     Active Substance: LENALIDOMIDE
     Indication: PLASMA CELL MYELOMA
     Dosage: 25 MILLIGRAM, QD
     Route: 048
     Dates: start: 20180508, end: 20180528
  16. LENALIDOMIDE [Concomitant]
     Active Substance: LENALIDOMIDE
     Dosage: 25 MILLIGRAM, QD
     Route: 048
     Dates: start: 20180605, end: 20180625
  17. DARATUMUMAB [Suspect]
     Active Substance: DARATUMUMAB
     Dosage: 1.3 MILLIGRAM/KILOGRAM, QD
     Route: 065
     Dates: start: 20180305, end: 20180305
  18. DEXAMETHASONE. [Suspect]
     Active Substance: DEXAMETHASONE
     Dosage: 10 MILLIGRAM, QD
     Route: 065
     Dates: start: 20181023, end: 20181023
  19. DEXAMETHASONE. [Suspect]
     Active Substance: DEXAMETHASONE
     Dosage: 10 MILLIGRAM, QD
     Route: 065
     Dates: start: 20181225, end: 20181225
  20. LENALIDOMIDE [Concomitant]
     Active Substance: LENALIDOMIDE
     Dosage: 25 MILLIGRAM, QD
     Route: 048
     Dates: start: 20181225, end: 20190114
  21. LENALIDOMIDE [Concomitant]
     Active Substance: LENALIDOMIDE
     Dosage: 25 MILLIGRAM, QD
     Route: 048
     Dates: start: 20190212, end: 20190304
  22. BORTEZOMIB. [Suspect]
     Active Substance: BORTEZOMIB
     Indication: PLASMA CELL MYELOMA
     Dosage: 1.3 MILLIGRAM/SQ. METER, QD
     Route: 065
     Dates: start: 20180312, end: 20180312
  23. DARATUMUMAB [Suspect]
     Active Substance: DARATUMUMAB
     Dosage: 16 MILLIGRAM/KILOGRAM
     Route: 041
     Dates: start: 20180410, end: 20180410
  24. DARATUMUMAB [Suspect]
     Active Substance: DARATUMUMAB
     Dosage: 16 MILLIGRAM/KILOGRAM, QD
     Route: 065
     Dates: start: 20180417, end: 20180417
  25. DARATUMUMAB [Suspect]
     Active Substance: DARATUMUMAB
     Dosage: 16 MILLIGRAM/SQ. METER, QD
     Route: 041
     Dates: start: 20180502, end: 20180502
  26. DARATUMUMAB [Suspect]
     Active Substance: DARATUMUMAB
     Dosage: 16 MILLIGRAM/KILOGRAM, QD
     Route: 041
     Dates: start: 20180619, end: 20180619
  27. DARATUMUMAB [Suspect]
     Active Substance: DARATUMUMAB
     Dosage: 16 MILLIGRAM/KILOGRAM, QD
     Route: 041
     Dates: start: 20180731, end: 20180731
  28. LENALIDOMIDE [Concomitant]
     Active Substance: LENALIDOMIDE
     Dosage: 25 MILLIGRAM, QD
     Route: 048
     Dates: start: 20180828, end: 20180917
  29. DARATUMUMAB [Suspect]
     Active Substance: DARATUMUMAB
     Indication: PLASMA CELL MYELOMA
     Dosage: 16 MILLIGRAM/KILOGRAM, QD
     Route: 041
     Dates: start: 20180305, end: 20180305
  30. DARATUMUMAB [Suspect]
     Active Substance: DARATUMUMAB
     Dosage: 16 MILLIGRAM/KILOGRAM, QD
     Route: 041
     Dates: start: 20180508, end: 20180508
  31. DARATUMUMAB [Suspect]
     Active Substance: DARATUMUMAB
     Dosage: 16 MILLIGRAM/KILOGRAM, QD
     Route: 041
     Dates: start: 20180823, end: 20180823
  32. DEXAMETHASONE. [Suspect]
     Active Substance: DEXAMETHASONE
     Dosage: 10 MILLIGRAM, QD
     Route: 065
     Dates: start: 20180717, end: 20180717
  33. DEXAMETHASONE. [Suspect]
     Active Substance: DEXAMETHASONE
     Dosage: 10 MILLIGRAM, QD
     Route: 065
     Dates: start: 20190212, end: 20190212
  34. LENALIDOMIDE [Concomitant]
     Active Substance: LENALIDOMIDE
     Dosage: 25 MILLIGRAM, QD
     Route: 048
     Dates: start: 20181023, end: 20181112
  35. BORTEZOMIB. [Suspect]
     Active Substance: BORTEZOMIB
     Dosage: 1.3 MILLIGRAM/SQ. METER
     Route: 065
     Dates: start: 20180319, end: 20180319
  36. BORTEZOMIB. [Suspect]
     Active Substance: BORTEZOMIB
     Dosage: 1.3 MILLIGRAM/SQ. METER, QD
     Route: 065
     Dates: start: 20180407, end: 20180407
  37. BORTEZOMIB. [Suspect]
     Active Substance: BORTEZOMIB
     Dosage: 1.3 MILLIGRAM/SQ. METER, QD
     Route: 065
     Dates: start: 20180413, end: 20180413
  38. DARATUMUMAB [Suspect]
     Active Substance: DARATUMUMAB
     Dosage: 16 MILLIGRAM/KILOGRAM, QD
     Route: 041
     Dates: start: 20180703, end: 20180703
  39. DARATUMUMAB [Suspect]
     Active Substance: DARATUMUMAB
     Dosage: 16 MILLIGRAM/KILOGRAM, QD
     Route: 041
     Dates: start: 20180814, end: 20180814
  40. DARATUMUMAB [Suspect]
     Active Substance: DARATUMUMAB
     Dosage: 16 MILLIGRAM/KILOGRAM, QD
     Route: 041
     Dates: start: 20180925, end: 20180925
  41. DARATUMUMAB [Suspect]
     Active Substance: DARATUMUMAB
     Dosage: 16 MILLIGRAM/KILOGRAM, QD
     Route: 065
     Dates: start: 20190312, end: 20190312
  42. DARATUMUMAB [Suspect]
     Active Substance: DARATUMUMAB
     Dosage: 1.3 MILLIGRAM/KILOGRAM, QD
     Route: 065
     Dates: start: 20180308, end: 20180308
  43. DEXAMETHASONE. [Suspect]
     Active Substance: DEXAMETHASONE
     Dosage: 20 MILLIGRAM, QD
     Route: 065
     Dates: start: 20180403, end: 20180403
  44. DEXAMETHASONE. [Suspect]
     Active Substance: DEXAMETHASONE
     Dosage: 20 MILLIGRAM, QD
     Route: 065
     Dates: start: 20180410, end: 20180410
  45. DEXAMETHASONE. [Suspect]
     Active Substance: DEXAMETHASONE
     Dosage: 20 MILLIGRAM, QD
     Route: 065
     Dates: start: 20180417, end: 20180417
  46. DEXAMETHASONE. [Suspect]
     Active Substance: DEXAMETHASONE
     Dosage: 20 MILLIGRAM, QD
     Route: 065
     Dates: start: 20180502, end: 20180502
  47. DEXAMETHASONE. [Suspect]
     Active Substance: DEXAMETHASONE
     Dosage: 20 MILLIGRAM, QD
     Route: 065
     Dates: start: 20180508, end: 20180508
  48. DEXAMETHASONE. [Suspect]
     Active Substance: DEXAMETHASONE
     Dosage: 10 MILLIGRAM, QD
     Route: 065
     Dates: start: 20190116, end: 20190116
  49. LENALIDOMIDE [Concomitant]
     Active Substance: LENALIDOMIDE
     Dosage: 25 MILLIGRAM, QD
     Route: 048
     Dates: start: 20180703, end: 20180723
  50. BORTEZOMIB. [Suspect]
     Active Substance: BORTEZOMIB
     Dosage: 1.3 MILLIGRAM/SQ. METER, QD
     Route: 065
     Dates: start: 20180403, end: 20180403
  51. BORTEZOMIB. [Suspect]
     Active Substance: BORTEZOMIB
     Dosage: 1.3 MILLIGRAM/KILOGRAM, QD
     Route: 065
     Dates: start: 20180424, end: 20180424
  52. DARATUMUMAB [Suspect]
     Active Substance: DARATUMUMAB
     Dosage: 16 MILLIGRAM/KILOGRAM, QD
     Route: 041
     Dates: start: 20180312, end: 20180312
  53. DARATUMUMAB [Suspect]
     Active Substance: DARATUMUMAB
     Dosage: 16 MILLIGRAM/KILOGRAM, QD
     Route: 041
     Dates: start: 20180605, end: 20180605
  54. DARATUMUMAB [Suspect]
     Active Substance: DARATUMUMAB
     Dosage: 16 MILLIGRAM/KILOGRAM, QD
     Route: 041
     Dates: start: 20180717, end: 20180717
  55. DARATUMUMAB [Suspect]
     Active Substance: DARATUMUMAB
     Dosage: 16 MILLIGRAM/KILOGRAM, QD
     Route: 041
     Dates: start: 20181127, end: 20181127
  56. DARATUMUMAB [Suspect]
     Active Substance: DARATUMUMAB
     Dosage: 16 MILLIGRAM/KILOGRAM, QD
     Route: 041
     Dates: start: 20190116, end: 20190116
  57. DEXAMETHASONE. [Suspect]
     Active Substance: DEXAMETHASONE
     Dosage: 20 MILLIGRAM, QD
     Route: 065
     Dates: start: 20180327, end: 20180327
  58. DEXAMETHASONE. [Suspect]
     Active Substance: DEXAMETHASONE
     Dosage: 20 MILLIGRAM, QD
     Route: 065
     Dates: start: 20180619, end: 20180619
  59. DEXAMETHASONE. [Suspect]
     Active Substance: DEXAMETHASONE
     Dosage: 10 MILLIGRAM, QD
     Route: 065
     Dates: start: 20180814, end: 20180814
  60. LENALIDOMIDE [Concomitant]
     Active Substance: LENALIDOMIDE
     Dosage: 25 MILLIGRAM, QD
     Route: 048
     Dates: start: 20180731, end: 20180817
  61. LENALIDOMIDE [Concomitant]
     Active Substance: LENALIDOMIDE
     Dosage: 25 MILLIGRAM, QD
     Route: 048
     Dates: start: 20180925, end: 20181015
  62. LENALIDOMIDE [Concomitant]
     Active Substance: LENALIDOMIDE
     Dosage: 25 MILLIGRAM, QD
     Route: 048
     Dates: start: 20181127, end: 20181217
  63. BORTEZOMIB. [Suspect]
     Active Substance: BORTEZOMIB
     Dosage: 1.3 MILLIGRAM/SQ. METER, QD
     Route: 065
     Dates: start: 20180315, end: 20180315
  64. BORTEZOMIB. [Suspect]
     Active Substance: BORTEZOMIB
     Dosage: 1.3 MILLIGRAM/SQ. METER, QD
     Route: 065
     Dates: start: 20180410, end: 20180410
  65. DARATUMUMAB [Suspect]
     Active Substance: DARATUMUMAB
     Dosage: 16 MILLIGRAM/KILOGRAM, QD
     Route: 041
     Dates: start: 20200327, end: 20200327
  66. DARATUMUMAB [Suspect]
     Active Substance: DARATUMUMAB
     Dosage: 16 MILLIGRAM/KILOGRAM, QD
     Route: 041
     Dates: start: 20180403, end: 20180403
  67. DEXAMETHASONE. [Suspect]
     Active Substance: DEXAMETHASONE
     Dosage: 20 MILLIGRAM, QD
     Route: 065
     Dates: start: 20180316, end: 20180316
  68. LENALIDOMIDE [Concomitant]
     Active Substance: LENALIDOMIDE
     Dosage: 25 MILLIGRAM, QD
     Route: 048
     Dates: start: 20190116, end: 20190204

REACTIONS (1)
  - Substance-induced psychotic disorder [Recovered/Resolved]

NARRATIVE: CASE EVENT DATE: 20180521
